FAERS Safety Report 21687192 (Version 1)
Quarter: 2022Q4

REPORT INFORMATION
  Report Type: Spontaneous
  Country: AU (occurrence: AU)
  Receive Date: 20221206
  Receipt Date: 20221206
  Transmission Date: 20230113
  Serious: Yes (Other)
  Sender: FDA-Public Use
  Company Number: AU-ASTELLAS PHARMA EUROPE B.V.-2022US029374

PATIENT
  Sex: Female

DRUGS (3)
  1. TAMSULOSIN HYDROCHLORIDE [Suspect]
     Active Substance: TAMSULOSIN HYDROCHLORIDE
     Indication: Product used for unknown indication
     Dosage: UNK,UNKNOWN FREQ.
  2. TAMSULOSIN HYDROCHLORIDE [Suspect]
     Active Substance: TAMSULOSIN HYDROCHLORIDE
     Indication: Bladder prolapse
  3. TAMSULOSIN HYDROCHLORIDE [Suspect]
     Active Substance: TAMSULOSIN HYDROCHLORIDE
     Indication: Prolapse

REACTIONS (10)
  - Fall [Unknown]
  - Head injury [Unknown]
  - Syncope [Unknown]
  - Vision blurred [Unknown]
  - Product use issue [Unknown]
  - Dizziness postural [Unknown]
  - Asthenia [Unknown]
  - Constipation [Unknown]
  - Dizziness [Unknown]
  - Off label use [Unknown]
